FAERS Safety Report 19610476 (Version 2)
Quarter: 2021Q3

REPORT INFORMATION
  Report Type: Spontaneous
  Country: PT (occurrence: PT)
  Receive Date: 20210726
  Receipt Date: 20210828
  Transmission Date: 20211014
  Serious: Yes (Other)
  Sender: FDA-Public Use
  Company Number: PT-LUPIN PHARMACEUTICALS INC.-2021-13339

PATIENT
  Age: 29 Year
  Sex: Female

DRUGS (2)
  1. DICLOFENAC SODIUM. [Suspect]
     Active Substance: DICLOFENAC SODIUM
     Indication: BACK PAIN
     Dosage: UNK (THE MOTHER OF THE NEONATE HAD RECEIVED A SINGLE DOSE OF IM DICLOFENAC AT 35WEEKS OF GESTATIONAL
     Route: 030
  2. PARACETAMOL [Interacting]
     Active Substance: ACETAMINOPHEN
     Indication: BACK PAIN
     Dosage: UNK (THE MOTHER OF THE NEONATE HAD RECEIVED 5DAY COURSE OF PARACETAMOL AT 35WEEKS OF GESTATIONAL AGE
     Route: 065

REACTIONS (2)
  - Drug interaction [Unknown]
  - Exposure during pregnancy [Unknown]
